FAERS Safety Report 7379224-X (Version None)
Quarter: 2011Q1

REPORT INFORMATION
  Report Type: 
  Country: None (occurrence: None)
  Receive Date: 20110328
  Receipt Date: 20110324
  Transmission Date: 20110831
  Serious: Yes (Life-Threatening, Hospitalization, Disabling, Other)
  Sender: FDA-Public Use
  Company Number: US-MERCK-1103USA00629

PATIENT
  Age: 81 Year
  Sex: Female

DRUGS (5)
  1. COUMADIN [Concomitant]
     Indication: ATRIAL FIBRILLATION
     Route: 065
  2. ZOCOR [Concomitant]
     Route: 048
  3. IRON (UNSPECIFIED) [Concomitant]
     Route: 065
  4. JANUVIA [Suspect]
     Indication: DIABETES MELLITUS
     Route: 048
     Dates: start: 20110203, end: 20110206
  5. POTASSIUM (UNSPECIFIED) [Concomitant]
     Route: 065

REACTIONS (8)
  - IRON DEFICIENCY ANAEMIA [None]
  - URINARY TRACT INFECTION [None]
  - NAUSEA [None]
  - FATIGUE [None]
  - VOMITING [None]
  - DEHYDRATION [None]
  - RESPIRATORY FAILURE [None]
  - CARDIAC FAILURE CONGESTIVE [None]
